FAERS Safety Report 5196206-7 (Version None)
Quarter: 2007Q1

REPORT INFORMATION
  Report Type: 
  Country: None (occurrence: None)
  Receive Date: 20070102
  Receipt Date: 20061221
  Transmission Date: 20070707
  Serious: Yes (Other)
  Sender: FDA-Public Use
  Company Number: US-PFIZER INC-2006155844

PATIENT

DRUGS (4)
  1. LYRICA [Suspect]
  2. CELESTONE [Suspect]
  3. XYLOCAINE [Suspect]
  4. IOHEXOL [Suspect]

REACTIONS (1)
  - CONVULSION [None]
